FAERS Safety Report 7481499-3 (Version None)
Quarter: 2011Q2

REPORT INFORMATION
  Report Type: 
  Country: None (occurrence: None)
  Receive Date: 20110516
  Receipt Date: 20110427
  Transmission Date: 20111010
  Serious: No
  Sender: FDA-Public Use
  Company Number: US-B.I. PHARMACEUTICALS,INC./RIDGEFIELD-2011-BP-02864BP

PATIENT
  Sex: Male

DRUGS (9)
  1. ALLOPURINOL [Concomitant]
     Indication: GOUT
  2. ACETAMINOPHEN AND HYDROCODONE BITARTRATE [Concomitant]
  3. PRADAXA [Suspect]
     Indication: ATRIAL FIBRILLATION
     Dosage: 300 MG
     Route: 048
     Dates: start: 20110122, end: 20110123
  4. LISINOPRIL AND HYDROCHLOROTHIAZIDE [Concomitant]
     Indication: HYPERTENSION
  5. METOPROLOL SUCCINATE [Concomitant]
     Indication: ATRIAL FIBRILLATION
  6. MULTAQ [Concomitant]
  7. WARFARIN SODIUM [Concomitant]
  8. OMEPRAZOLE [Concomitant]
     Indication: ULCER
  9. LORTAB [Concomitant]
     Indication: ARTHRITIS

REACTIONS (5)
  - FLATULENCE [None]
  - ABDOMINAL DISTENSION [None]
  - HYPOAESTHESIA [None]
  - DIARRHOEA [None]
  - ABDOMINAL DISCOMFORT [None]
